FAERS Safety Report 7752666-6 (Version None)
Quarter: 2011Q3

REPORT INFORMATION
  Report Type: 
  Country: None (occurrence: None)
  Receive Date: 20110915
  Receipt Date: 20110907
  Transmission Date: 20111222
  Serious: Yes (Hospitalization)
  Sender: FDA-Public Use
  Company Number: JP-ROCHE-767634

PATIENT
  Sex: Female

DRUGS (2)
  1. ACETAMINOPHEN [Suspect]
     Dosage: DOSE FORM: PERORAL AGENT.DOSAGE IS UNCERTAIN.
     Route: 048
     Dates: start: 20110315, end: 20110317
  2. TAMIFLU [Suspect]
     Indication: INFLUENZA
     Route: 048
     Dates: start: 20110315, end: 20110317

REACTIONS (1)
  - CHOLESTASIS [None]
